FAERS Safety Report 18929379 (Version 3)
Quarter: 2021Q1

REPORT INFORMATION
  Report Type: Spontaneous
  Country: US (occurrence: US)
  Receive Date: 20210223
  Receipt Date: 20210309
  Transmission Date: 20210420
  Serious: Yes (Other)
  Sender: FDA-Public Use
  Company Number: US-MYLANLABS-2021M1010362

PATIENT
  Sex: Male

DRUGS (1)
  1. MUSE [Suspect]
     Active Substance: ALPROSTADIL
     Indication: ERECTILE DYSFUNCTION
     Dosage: 500 MICROGRAM, PRN UP TO 3 TIMES WEEKLY
     Route: 066
     Dates: start: 202101

REACTIONS (3)
  - Product quality issue [Unknown]
  - Product storage error [Unknown]
  - Urethral haemorrhage [Recovered/Resolved]
